FAERS Safety Report 9288040 (Version 1)
Quarter: 2013Q2

REPORT INFORMATION
  Report Type: Spontaneous
  Country: DE (occurrence: None)
  Receive Date: 20130509
  Receipt Date: 20130509
  Transmission Date: 20140414
  Serious: Yes (Other)
  Sender: FDA-Public Use
  Company Number: NGX_01734_2013

PATIENT
  Age: 74 Year
  Sex: Female
  Weight: 75 kg

DRUGS (3)
  1. QUTENZA [Suspect]
     Indication: COMPLEX REGIONAL PAIN SYNDROME
     Dosage: (2 DF 1X TOPICAL)
     Route: 061
     Dates: start: 20130418, end: 20130418
  2. AMITRIPTYLIN [Concomitant]
  3. NOVAMINSULFON [Concomitant]

REACTIONS (5)
  - Ulnar nerve injury [None]
  - Application site pain [None]
  - Burning sensation [None]
  - Complex regional pain syndrome [None]
  - Condition aggravated [None]
